FAERS Safety Report 20417212 (Version 1)
Quarter: 2022Q1

REPORT INFORMATION
  Report Type: Spontaneous
  Country: NL (occurrence: NL)
  Receive Date: 20220202
  Receipt Date: 20220202
  Transmission Date: 20220423
  Serious: Yes (Death)
  Sender: FDA-Public Use
  Company Number: NL-ABBVIE-22K-114-4260327-00

PATIENT
  Age: 63 Year
  Sex: Male

DRUGS (6)
  1. RITONAVIR [Interacting]
     Active Substance: RITONAVIR
     Indication: HIV infection
     Route: 048
     Dates: start: 2019
  2. PACLITAXEL [Interacting]
     Active Substance: PACLITAXEL
     Indication: Adenocarcinoma gastric
     Dosage: ON DAYS 1, 8, AND 15, IN A 28 DAY CYCLE
     Route: 065
  3. DARUNAVIR [Concomitant]
     Active Substance: DARUNAVIR
     Indication: HIV infection
     Dates: start: 2019
  4. LAMIVUDINE [Concomitant]
     Active Substance: LAMIVUDINE
     Indication: HIV infection
     Dates: start: 2019
  5. ABACAVIR [Concomitant]
     Active Substance: ABACAVIR
     Indication: HIV infection
     Dates: start: 2019
  6. CARBOPLATIN [Concomitant]
     Active Substance: CARBOPLATIN
     Indication: Adenocarcinoma gastric
     Dosage: TARGET AUC = 4MG MIN/ML (CALVERT); ON DAYS 1, 8, AND 15, IN A 28 DAY CYCLE
     Dates: start: 2019

REACTIONS (2)
  - Neutropenic sepsis [Fatal]
  - Drug interaction [Fatal]
